FAERS Safety Report 9628465 (Version 1)
Quarter: 2013Q4

REPORT INFORMATION
  Report Type: Spontaneous
  Country: US (occurrence: US)
  Receive Date: 20131017
  Receipt Date: 20131017
  Transmission Date: 20140711
  Serious: No
  Sender: FDA-Public Use
  Company Number: US-PFIZER INC-2013297689

PATIENT
  Age: 64 Year
  Sex: Male
  Weight: 86.2 kg

DRUGS (2)
  1. CHANTIX [Suspect]
     Indication: SMOKING CESSATION THERAPY
     Dosage: 2 MG, DAILY
     Dates: start: 201310, end: 201310
  2. CHANTIX [Suspect]
     Dosage: 1 MG, DAILY
     Dates: start: 201310

REACTIONS (3)
  - Rash [Not Recovered/Not Resolved]
  - Abnormal dreams [Unknown]
  - Anxiety [Unknown]
